FAERS Safety Report 5933526-X (Version None)
Quarter: 2008Q4

REPORT INFORMATION
  Report Type: 
  Country: None (occurrence: None)
  Receive Date: 20081028
  Receipt Date: 20081028
  Transmission Date: 20090506
  Serious: No
  Sender: FDA-Public Use
  Company Number: None

PATIENT
  Age: 41 Year
  Sex: Female
  Weight: 75.7507 kg

DRUGS (2)
  1. TOPAMAX [Suspect]
     Indication: HEADACHE
     Dosage: TITRATION SCHEDULE BID PO
     Route: 048
     Dates: start: 20060303
  2. TOPAMAX [Suspect]
     Indication: HEADACHE
     Dosage: 100MG BID PO
     Route: 048
     Dates: start: 20060719

REACTIONS (2)
  - ARTHRALGIA [None]
  - RASH [None]
